FAERS Safety Report 4660215-4 (Version None)
Quarter: 2005Q2

REPORT INFORMATION
  Report Type: 
  Country: None (occurrence: None)
  Receive Date: 20050505
  Receipt Date: 20050128
  Transmission Date: 20051028
  Serious: No
  Sender: FDA-Public Use
  Company Number: 2005USFACT00277

PATIENT
  Age: 42 Year
  Sex: Female
  Weight: 79.4 kg

DRUGS (12)
  1. FACTIVE [Suspect]
     Indication: RESPIRATORY TRACT INFECTION BACTERIAL
     Dosage: 320.00 MG, QD, ORAL
     Route: 048
     Dates: start: 20041222, end: 20041228
  2. ALLEGRA [Concomitant]
  3. ADVAIR (FLUTICASONE PROPIONATE, SALMETEROL XINAFOATE) [Concomitant]
  4. SINGULAIR [Concomitant]
  5. AQUATAB C (GUAIFENESIN, PHENYLPROPANOLAMINE, DEXTROMETHORPHAN) [Concomitant]
  6. PREVACID [Concomitant]
  7. SYNTHROID [Concomitant]
  8. FOLIC ACID [Concomitant]
  9. CALCIUM (CALCIUM) [Concomitant]
  10. VITAMIN E [Concomitant]
  11. FOSAMAX [Concomitant]
  12. FLONASE [Concomitant]

REACTIONS (3)
  - DIARRHOEA [None]
  - RASH GENERALISED [None]
  - SWELLING FACE [None]
